FAERS Safety Report 10032762 (Version 3)
Quarter: 2014Q2

REPORT INFORMATION
  Report Type: Report from Study
  Country: US (occurrence: US)
  Receive Date: 20140324
  Receipt Date: 20140613
  Transmission Date: 20141212
  Serious: Yes (Hospitalization, Other)
  Sender: FDA-Public Use
  Company Number: US-BRISTOL-MYERS SQUIBB COMPANY-19072362

PATIENT
  Age: 58 Year
  Sex: Male
  Weight: 113 kg

DRUGS (1)
  1. IPILIMUMAB [Suspect]
     Indication: MALIGNANT MELANOMA
     Dosage: LAST DOSE: 17JUN2013 (TOTAL DOSE 1193MG)
     Route: 042
     Dates: start: 20130415

REACTIONS (6)
  - Interstitial lung disease [Recovered/Resolved]
  - Respiratory failure [Recovered/Resolved]
  - Dehydration [Unknown]
  - Renal failure acute [Unknown]
  - Autoimmune hepatitis [Not Recovered/Not Resolved]
  - Blood bilirubin increased [Unknown]
